FAERS Safety Report 5595923-4 (Version None)
Quarter: 2008Q1

REPORT INFORMATION
  Report Type: 
  Country: None (occurrence: None)
  Receive Date: 20080118
  Receipt Date: 20080109
  Transmission Date: 20080703
  Serious: Yes (Other)
  Sender: FDA-Public Use
  Company Number: US-ASTRAZENECA-2007UW07509

PATIENT
  Age: 519 Month
  Sex: Female
  Weight: 121.8 kg

DRUGS (7)
  1. SEROQUEL [Suspect]
     Indication: SLEEP DISORDER
     Dosage: 25 MG TO 300 MG
     Route: 048
     Dates: start: 19980615
  2. ZYPREXA [Concomitant]
     Dates: start: 20010626, end: 20030618
  3. EFFEXOR [Concomitant]
  4. ALPRAZOLAM [Concomitant]
  5. HYDROXYZINE [Concomitant]
  6. DIAZEPAM [Concomitant]
  7. HRT [Concomitant]

REACTIONS (7)
  - CHEST PAIN [None]
  - HYPERTENSION [None]
  - KNEE OPERATION [None]
  - RHINITIS [None]
  - SKIN DISORDER [None]
  - THROMBOSIS [None]
  - TYPE 2 DIABETES MELLITUS [None]
